FAERS Safety Report 11839657 (Version 1)
Quarter: 2015Q4

REPORT INFORMATION
  Report Type: Spontaneous
  Country: US (occurrence: None)
  Receive Date: 20151215
  Receipt Date: 20151215
  Transmission Date: 20160305
  Serious: Yes (Death, Hospitalization)
  Sender: FDA-Public Use
  Company Number: None

PATIENT
  Age: 68 Year
  Sex: Female
  Weight: 83.2 kg

DRUGS (4)
  1. ACETAMINOPHEN. [Concomitant]
     Active Substance: ACETAMINOPHEN
  2. CLONIDINE. [Concomitant]
     Active Substance: CLONIDINE
  3. IVIG [Suspect]
     Active Substance: HUMAN IMMUNOGLOBULIN G
     Indication: MYASTHENIA GRAVIS
     Dosage: 126 G TOTAL OVER 3 DAYS
     Route: 042
     Dates: start: 20151113, end: 20151115
  4. LOSARTAN 50 MG UNKNOWN [Suspect]
     Active Substance: LOSARTAN
     Indication: HYPERTENSION
     Dosage: PO OR NG TUBE
     Route: 048
     Dates: start: 20151020, end: 20151115

REACTIONS (2)
  - Acute kidney injury [None]
  - Renal impairment [None]

NARRATIVE: CASE EVENT DATE: 20151113
